FAERS Safety Report 4641070-5 (Version None)
Quarter: 2005Q2

REPORT INFORMATION
  Report Type: 
  Country: None (occurrence: None)
  Receive Date: 20050419
  Receipt Date: 20050419
  Transmission Date: 20051028
  Serious: No
  Sender: FDA-Public Use
  Company Number: None

PATIENT
  Sex: Male
  Weight: 112.4921 kg

DRUGS (1)
  1. LINEZOLID    600MG    UPJOHN [Suspect]
     Indication: OSTEOMYELITIS
     Dosage: 600MG   TWICE DAILY  ORAL
     Route: 048
     Dates: start: 20050311, end: 20050404

REACTIONS (1)
  - THROMBOCYTOPENIA [None]
